FAERS Safety Report 8449820-7 (Version None)
Quarter: 2012Q2

REPORT INFORMATION
  Report Type: 
  Country: None (occurrence: None)
  Receive Date: 20120620
  Receipt Date: 20120612
  Transmission Date: 20120825
  Serious: Yes (Life-Threatening, Hospitalization)
  Sender: FDA-Public Use
  Company Number: IT-ELI_LILLY_AND_COMPANY-IT201206003174

PATIENT
  Sex: Male

DRUGS (12)
  1. DULOXETINE HYDROCHLORIDE [Suspect]
     Dosage: 56 DF, SINGLE
     Dates: start: 20120523, end: 20120523
  2. TRAMADOL HCL [Concomitant]
     Dosage: 3000 MG, SINGLE
     Dates: start: 20120523, end: 20120523
  3. DULOXETINE HYDROCHLORIDE [Suspect]
     Dosage: UNK
  4. PREGABALIN [Concomitant]
     Indication: DIABETIC NEUROPATHY
     Dosage: 300 MG, BID
  5. HUMALOG [Suspect]
     Dosage: 3 ML, SINGLE
     Dates: start: 20120523, end: 20120523
  6. APIDRA [Concomitant]
     Dosage: 100 U, UNK
     Route: 058
     Dates: start: 20120423, end: 20120523
  7. DIAZEPAM [Concomitant]
     Dosage: 100 MG, SINGLE
     Dates: start: 20120523, end: 20120523
  8. DEPAKENE [Concomitant]
     Dosage: 1 DF, SINGLE
     Dates: start: 20120523, end: 20120523
  9. PREGABALIN [Concomitant]
     Dosage: 14 DF, SINGLE
     Dates: start: 20120523, end: 20120523
  10. APIDRA [Concomitant]
     Dosage: 3 UNK,
     Route: 058
     Dates: start: 20120523, end: 20120523
  11. RAMIPRIL [Concomitant]
     Dosage: 5 MG, UNKNOWN
  12. INSULIN GLARGINE [Concomitant]
     Dosage: 1 DF, UNKNOWN

REACTIONS (12)
  - SOPOR [None]
  - ALANINE AMINOTRANSFERASE INCREASED [None]
  - BRADYKINESIA [None]
  - BRADYPHRENIA [None]
  - OVERDOSE [None]
  - SUICIDE ATTEMPT [None]
  - HYPOGLYCAEMIA [None]
  - HYPOTENSION [None]
  - INCORRECT DOSE ADMINISTERED [None]
  - ASPARTATE AMINOTRANSFERASE INCREASED [None]
  - MULTIPLE DRUG OVERDOSE INTENTIONAL [None]
  - DRUG ADMINISTRATION ERROR [None]
